FAERS Safety Report 8880391 (Version 1)
Quarter: 2012Q4

REPORT INFORMATION
  Report Type: 
  Country: US (occurrence: US)
  Receive Date: 20121031
  Receipt Date: 20121031
  Transmission Date: 20130627
  Serious: Yes (Other)
  Sender: FDA-Public Use
  Company Number: PHHY2012US097379

PATIENT
  Age: 68 Year
  Sex: Female

DRUGS (6)
  1. CICLOSPORIN [Suspect]
     Dosage: 75 mg, BID
  2. PREDNISONE [Suspect]
     Dosage: 5 mg, daily
  3. ALENDRONATE [Suspect]
     Dosage: 70 mg, QW
  4. ANTITHYMOCYTE IMMUNOGLOBULIN [Concomitant]
  5. AZATHIOPRINE [Concomitant]
     Dosage: 100 mg, UNK
  6. ERGOCALCIFEROL [Concomitant]
     Dosage: 50000 U, QW

REACTIONS (3)
  - Low turnover osteopathy [Unknown]
  - Bone density decreased [Unknown]
  - Kidney transplant rejection [Unknown]
